FAERS Safety Report 13864245 (Version 4)
Quarter: 2017Q4

REPORT INFORMATION
  Report Type: Report from Study
  Country: US (occurrence: US)
  Receive Date: 20170814
  Receipt Date: 20171106
  Transmission Date: 20180320
  Serious: Yes (Death, Other)
  Sender: FDA-Public Use
  Company Number: PHEH2017US025563

PATIENT
  Age: 43 Year
  Sex: Female
  Weight: 98.97 kg

DRUGS (1)
  1. ENTRESTO [Suspect]
     Active Substance: SACUBITRIL\VALSARTAN
     Indication: CARDIAC FAILURE
     Dosage: 1 DF (24/26MG), BID
     Route: 048

REACTIONS (5)
  - Death [Fatal]
  - Chest pain [Unknown]
  - Ventricular fibrillation [Unknown]
  - Electrocardiogram QT interval abnormal [Unknown]
  - Pain [Unknown]

NARRATIVE: CASE EVENT DATE: 20170825
